FAERS Safety Report 6983212-2 (Version None)
Quarter: 2010Q3

REPORT INFORMATION
  Report Type: 
  Country: None (occurrence: None)
  Receive Date: 20100910
  Receipt Date: 20100827
  Transmission Date: 20110219
  Serious: Yes (Hospitalization, Other)
  Sender: FDA-Public Use
  Company Number: 2010AP001698

PATIENT
  Age: 55 Year
  Sex: Male

DRUGS (7)
  1. FOSPHENYTOIN SODIUM [Suspect]
     Indication: CONVULSION PROPHYLAXIS
     Dosage: 1 GM
  2. PHENYTOIN SODIUM [Suspect]
     Dosage: 100 MG;TID
  3. ESOMEPRAZOLE MAGNESIUM [Suspect]
     Dosage: 40 MG;BID
  4. LORAZEPAM [Suspect]
  5. CAPTOPRIL [Concomitant]
  6. HYDROCHLOROTHIAZIDE [Concomitant]
  7. DOBUTAMINE HCL [Concomitant]

REACTIONS (8)
  - BODY TEMPERATURE INCREASED [None]
  - DRUG INTERACTION [None]
  - HYPOTENSION [None]
  - ISCHAEMIC HEPATITIS [None]
  - LUNG INFILTRATION [None]
  - PLATELET TOXICITY [None]
  - RENAL FAILURE ACUTE [None]
  - THROMBOCYTOPENIA [None]
